FAERS Safety Report 6878798-2 (Version None)
Quarter: 2010Q3

REPORT INFORMATION
  Report Type: 
  Country: None (occurrence: None)
  Receive Date: 20100728
  Receipt Date: 20100716
  Transmission Date: 20110219
  Serious: Yes (Hospitalization)
  Sender: FDA-Public Use
  Company Number: GB-NOVOPROD-311568

PATIENT
  Sex: Male

DRUGS (1)
  1. NOVOMIX 30 [Suspect]
     Indication: PRODUCT USED FOR UNKNOWN INDICATION
     Dosage: 18 IU, BID
     Route: 058
     Dates: start: 20100701

REACTIONS (2)
  - DIARRHOEA [None]
  - MALAISE [None]
